FAERS Safety Report 12652438 (Version 1)
Quarter: 2016Q3

REPORT INFORMATION
  Report Type: Spontaneous
  Country: US (occurrence: US)
  Receive Date: 20160815
  Receipt Date: 20160815
  Transmission Date: 20161109
  Serious: No
  Sender: FDA-Public Use
  Company Number: US-PFIZER INC-2016366234

PATIENT
  Sex: Male
  Weight: 78 kg

DRUGS (3)
  1. ZOLOFT [Suspect]
     Active Substance: SERTRALINE HYDROCHLORIDE
     Dosage: 25 MG, UNK
  2. ZOLOFT [Suspect]
     Active Substance: SERTRALINE HYDROCHLORIDE
     Indication: DEPRESSION
     Dosage: LESS THAN THERAPEUTIC DOSE
  3. ZOLOFT [Suspect]
     Active Substance: SERTRALINE HYDROCHLORIDE
     Dosage: 50 MG, UNK

REACTIONS (11)
  - Condition aggravated [Unknown]
  - Prescribed underdose [Unknown]
  - Increased appetite [Unknown]
  - Weight increased [Unknown]
  - Hunger [Unknown]
  - Overweight [Unknown]
  - Mental disorder [Unknown]
  - Depression [Unknown]
  - Hyperphagia [Unknown]
  - Anger [Unknown]
  - Attention deficit/hyperactivity disorder [Unknown]
